FAERS Safety Report 7157313-2 (Version None)
Quarter: 2010Q4

REPORT INFORMATION
  Report Type: 
  Country: None (occurrence: None)
  Receive Date: 20101214
  Receipt Date: 20101129
  Transmission Date: 20110411
  Serious: No
  Sender: FDA-Public Use
  Company Number: US-PFIZER INC-2010161918

PATIENT
  Age: 48 Year
  Sex: Male
  Weight: 90.703 kg

DRUGS (2)
  1. ADVIL CONGESTION RELIEF [Suspect]
     Indication: NASAL CONGESTION
     Dosage: 1  TABLET EVERY 4 HRS
     Route: 048
     Dates: start: 20101101, end: 20101101
  2. ADVIL [Concomitant]
     Indication: SINUS HEADACHE

REACTIONS (1)
  - DRUG INEFFECTIVE [None]
